FAERS Safety Report 9479606 (Version 3)
Quarter: 2013Q3

REPORT INFORMATION
  Report Type: Report from Study
  Country: US (occurrence: US)
  Receive Date: 20130827
  Receipt Date: 20130923
  Transmission Date: 20140515
  Serious: Yes (Other)
  Sender: FDA-Public Use
  Company Number: PHEH2013US018011

PATIENT
  Age: 12 Year
  Sex: Male

DRUGS (2)
  1. TOBI [Suspect]
     Indication: PSEUDOMONAS INFECTION
     Dosage: 300 MG, BID (FOR 28 DAYS, OFF 28 DAYS )
     Dates: start: 201302, end: 201307
  2. PULMICORT [Concomitant]
     Dosage: 0.5 MG, BID

REACTIONS (1)
  - Post procedural haemorrhage [Unknown]
